FAERS Safety Report 4964160-6 (Version None)
Quarter: 2006Q1

REPORT INFORMATION
  Report Type: 
  Country: None (occurrence: None)
  Receive Date: 20060330
  Receipt Date: 20060327
  Transmission Date: 20060701
  Serious: Yes (Hospitalization)
  Sender: FDA-Public Use
  Company Number: ZONI002299

PATIENT
  Age: 22 Year
  Sex: Female

DRUGS (2)
  1. ZONEGRAN [Suspect]
     Indication: EPILEPSY
     Dosage: SEE IMAGE
     Route: 048
     Dates: end: 20060325
  2. ZONEGRAN [Suspect]
     Indication: EPILEPSY
     Dosage: SEE IMAGE
     Route: 048
     Dates: start: 20050701

REACTIONS (1)
  - APLASTIC ANAEMIA [None]
